FAERS Safety Report 14093062 (Version 5)
Quarter: 2018Q1

REPORT INFORMATION
  Report Type: Spontaneous
  Country: US (occurrence: US)
  Receive Date: 20171016
  Receipt Date: 20180209
  Transmission Date: 20180508
  Serious: Yes (Hospitalization, Disabling)
  Sender: FDA-Public Use
  Company Number: US-LUNDBECK-DKLU2038366

PATIENT
  Age: 76 Year
  Sex: Male

DRUGS (7)
  1. NORTHERA [Suspect]
     Active Substance: DROXIDOPA
     Indication: PARKINSON^S DISEASE
     Route: 048
  2. NORTHERA [Suspect]
     Active Substance: DROXIDOPA
     Route: 065
     Dates: start: 20170929
  3. SINEMET [Concomitant]
     Active Substance: CARBIDOPA\LEVODOPA
     Indication: PRODUCT USED FOR UNKNOWN INDICATION
     Route: 065
  4. CARBIDOPA LEVODOPA [Concomitant]
     Active Substance: CARBIDOPA\LEVODOPA
     Indication: PRODUCT USED FOR UNKNOWN INDICATION
     Route: 065
  5. MIDODRINE [Concomitant]
     Active Substance: MIDODRINE
     Indication: PRODUCT USED FOR UNKNOWN INDICATION
     Route: 065
  6. NORTHERA [Suspect]
     Active Substance: DROXIDOPA
     Indication: ORTHOSTATIC HYPOTENSION
     Route: 048
     Dates: start: 20170930
  7. NORTHERA [Suspect]
     Active Substance: DROXIDOPA
     Route: 048

REACTIONS (11)
  - Syncope [Unknown]
  - Dysstasia [Not Recovered/Not Resolved]
  - Bedridden [Unknown]
  - Pallor [Unknown]
  - Loss of consciousness [Unknown]
  - Orthostatic hypotension [Unknown]
  - Pulse abnormal [Not Recovered/Not Resolved]
  - Heart sounds abnormal [Unknown]
  - Blood pressure decreased [Unknown]
  - Condition aggravated [Not Recovered/Not Resolved]
  - Blood pressure immeasurable [Unknown]

NARRATIVE: CASE EVENT DATE: 201709
